FAERS Safety Report 6902399-0 (Version None)
Quarter: 2010Q3

REPORT INFORMATION
  Report Type: 
  Country: None (occurrence: None)
  Receive Date: 20100803
  Receipt Date: 20080517
  Transmission Date: 20110219
  Serious: No
  Sender: FDA-Public Use
  Company Number: US-PFIZER INC-2008043013

PATIENT
  Sex: Male
  Weight: 79.5 kg

DRUGS (7)
  1. LYRICA [Suspect]
     Indication: BONE PAIN
     Route: 048
     Dates: start: 20080514
  2. PREVACID [Concomitant]
     Route: 048
     Dates: start: 19990101
  3. CRESTOR [Concomitant]
     Route: 048
     Dates: start: 20070101
  4. ULTRAM [Concomitant]
     Route: 048
  5. MOBIC [Concomitant]
     Route: 048
  6. VITAMIN TAB [Concomitant]
     Route: 048
  7. ANALGESICS [Concomitant]

REACTIONS (4)
  - FATIGUE [None]
  - FEELING ABNORMAL [None]
  - SEDATION [None]
  - SOMNOLENCE [None]
